FAERS Safety Report 7036835-9 (Version None)
Quarter: 2010Q4

REPORT INFORMATION
  Report Type: 
  Country: None (occurrence: None)
  Receive Date: 20101011
  Receipt Date: 20100412
  Transmission Date: 20110411
  Serious: Yes (Other)
  Sender: FDA-Public Use
  Company Number: US-ASTRAZENECA-2008UW03313

PATIENT
  Age: 11708 Day
  Sex: Female
  Weight: 90.5 kg

DRUGS (16)
  1. SEROQUEL [Suspect]
     Dosage: 25 MG TO 300 MG DISPENSED
     Route: 048
     Dates: start: 20040203
  2. SEROQUEL [Suspect]
     Dosage: 300 MG TO 400 MG
     Route: 048
     Dates: start: 20060908
  3. LIPITOR [Concomitant]
     Route: 048
     Dates: start: 20060901
  4. DICYCLOMINE [Concomitant]
     Dosage: 20 MG UP TO QID PRN
     Route: 048
     Dates: start: 20060901
  5. PHENERGAN [Concomitant]
     Dosage: 25 MG QID PRN
     Route: 048
     Dates: start: 20060901
  6. LEVOTHYROXINE [Concomitant]
     Route: 048
     Dates: start: 20060901
  7. REQUIP [Concomitant]
     Route: 048
     Dates: start: 20060901
  8. CYMBALTA [Concomitant]
     Route: 048
     Dates: start: 20060908
  9. ESKALITH CR [Concomitant]
     Dosage: 300 MG 3 PO BID, 450 MG DISPENSED
     Route: 048
     Dates: start: 20040507
  10. VALIUM [Concomitant]
     Route: 048
     Dates: start: 20040507
  11. RESTORIL [Concomitant]
     Dosage: 15 MG 2 QHS
     Route: 048
     Dates: start: 20040507
  12. TOPAMAX [Concomitant]
     Dosage: 100 MG TO 150 MG
     Dates: start: 20060908
  13. LORTAB [Concomitant]
     Dates: start: 20060908
  14. DEPAKOTE ER [Concomitant]
     Dates: start: 20040203
  15. EFFEXOR XR [Concomitant]
     Dosage: 75 MG, 150 MG DISPENSED
     Dates: start: 20040507
  16. LORAZEPAM [Concomitant]
     Dates: start: 20040203

REACTIONS (3)
  - DIABETES MELLITUS [None]
  - DIABETES MELLITUS INADEQUATE CONTROL [None]
  - NEUROPATHY PERIPHERAL [None]
